FAERS Safety Report 7504814-0 (Version None)
Quarter: 2011Q2

REPORT INFORMATION
  Report Type: 
  Country: None (occurrence: None)
  Receive Date: 20110525
  Receipt Date: 20110328
  Transmission Date: 20111010
  Serious: No
  Sender: FDA-Public Use
  Company Number: US-AMGEN-USASP2011015432

PATIENT
  Age: 83 Year
  Sex: Male

DRUGS (2)
  1. ARANESP [Suspect]
     Indication: RENAL FAILURE CHRONIC
     Dosage: 25 A?G, Q2WK
     Dates: start: 20110209
  2. ARANESP [Suspect]
     Dosage: 100 A?G, UNK
     Dates: start: 20110309

REACTIONS (1)
  - HAEMOGLOBIN DECREASED [None]
